FAERS Safety Report 4981347-7 (Version None)
Quarter: 2006Q2

REPORT INFORMATION
  Report Type: 
  Country: None (occurrence: None)
  Receive Date: 20060424
  Receipt Date: 20050713
  Transmission Date: 20061013
  Serious: Yes (Disabling)
  Sender: FDA-Public Use
  Company Number: US-MERCK-0507USA01740

PATIENT
  Age: 46 Year
  Sex: Female
  Weight: 59 kg

DRUGS (5)
  1. VIOXX [Suspect]
     Indication: PAIN
     Route: 048
     Dates: start: 20010801, end: 20030401
  2. NEXIUM [Concomitant]
     Route: 065
  3. VALIUM [Concomitant]
     Indication: DIZZINESS
     Route: 065
  4. BENADRYL [Concomitant]
     Indication: SLEEP DISORDER
     Route: 065
  5. ASPIRIN [Concomitant]
     Indication: PROPHYLAXIS
     Route: 065

REACTIONS (6)
  - CEREBROVASCULAR ACCIDENT [None]
  - DIZZINESS [None]
  - GASTROINTESTINAL DISORDER [None]
  - HYPERCHOLESTEROLAEMIA [None]
  - THYROID NEOPLASM [None]
  - TINNITUS [None]
